FAERS Safety Report 7423003-1 (Version None)
Quarter: 2011Q2

REPORT INFORMATION
  Report Type: 
  Country: None (occurrence: None)
  Receive Date: 20110419
  Receipt Date: 20110401
  Transmission Date: 20111010
  Serious: No
  Sender: FDA-Public Use
  Company Number: US-B.I. PHARMACEUTICALS,INC./RIDGEFIELD-2011-BP-09846BP

PATIENT
  Sex: Female

DRUGS (7)
  1. METOPROLOL [Concomitant]
     Route: 048
  2. DIGOXIN [Concomitant]
     Route: 048
  3. CAPTOPRIL [Concomitant]
     Route: 048
  4. VITAMINS [Concomitant]
     Route: 048
  5. JANUVIA [Concomitant]
     Indication: DIABETES MELLITUS
     Route: 048
  6. PRADAXA [Suspect]
     Indication: CARDIAC DISORDER
     Dosage: 300 MG
     Route: 048
     Dates: start: 20110330
  7. WATER PILL [Concomitant]
     Route: 048

REACTIONS (4)
  - RASH [None]
  - MEMORY IMPAIRMENT [None]
  - DIZZINESS [None]
  - PRURITUS [None]
